FAERS Safety Report 7221373-0 (Version None)
Quarter: 2011Q1

REPORT INFORMATION
  Report Type: 
  Country: None (occurrence: None)
  Receive Date: 20110112
  Receipt Date: 20110103
  Transmission Date: 20110831
  Serious: Yes (Hospitalization)
  Sender: FDA-Public Use
  Company Number: MX-SANOFI-AVENTIS-2011SA000197

PATIENT
  Age: 83 Year
  Sex: Male

DRUGS (4)
  1. DILTIAZEM [Concomitant]
     Route: 048
  2. INSULIN GLARGINE [Suspect]
     Route: 058
     Dates: start: 20101231
  3. PROPRANOLOL [Concomitant]
     Dosage: EVERY THIRD DAY
     Route: 048
  4. INSULIN GLARGINE [Suspect]
     Indication: TYPE 2 DIABETES MELLITUS
     Route: 058
     Dates: end: 20101231

REACTIONS (3)
  - UPPER LIMB FRACTURE [None]
  - FALL [None]
  - HYPERGLYCAEMIA [None]
